FAERS Safety Report 11861078 (Version 3)
Quarter: 2018Q3

REPORT INFORMATION
  Report Type: Spontaneous
  Country: US (occurrence: US)
  Receive Date: 20151222
  Receipt Date: 20180726
  Transmission Date: 20181010
  Serious: No
  Sender: FDA-Public Use
  Company Number: US-ASTRAZENECA-2015SF26448

PATIENT
  Age: 31255 Day
  Sex: Male
  Weight: 70.3 kg

DRUGS (2)
  1. BYDUREON BCISE [Suspect]
     Active Substance: EXENATIDE
     Indication: DIABETES MELLITUS
     Route: 058
     Dates: start: 2018
  2. BYDUREON [Suspect]
     Active Substance: EXENATIDE
     Indication: DIABETES MELLITUS
     Route: 065

REACTIONS (6)
  - Incorrect dose administered by device [Not Recovered/Not Resolved]
  - Injection site mass [Not Recovered/Not Resolved]
  - Intentional product misuse [Unknown]
  - Device defective [Unknown]
  - Blood glucose increased [Unknown]
  - Device failure [Unknown]

NARRATIVE: CASE EVENT DATE: 20151210
